FAERS Safety Report 20678089 (Version 1)
Quarter: 2022Q2

REPORT INFORMATION
  Report Type: Spontaneous
  Country: US (occurrence: US)
  Receive Date: 20220406
  Receipt Date: 20220406
  Transmission Date: 20220721
  Serious: No
  Sender: FDA-Public Use
  Company Number: US-ALLERGAN-2204029US

PATIENT
  Age: 78 Year
  Sex: Female

DRUGS (3)
  1. QULIPTA [Suspect]
     Active Substance: ATOGEPANT
     Indication: Migraine
     Dosage: 0.5 DF
     Dates: start: 20220128, end: 20220128
  2. QULIPTA [Suspect]
     Active Substance: ATOGEPANT
     Dosage: 0.5 DF
     Dates: start: 20220127
  3. TYLENOL [Concomitant]
     Active Substance: ACETAMINOPHEN
     Indication: Migraine
     Dosage: 1 DF
     Dates: start: 20220128

REACTIONS (1)
  - Drug ineffective [Unknown]

NARRATIVE: CASE EVENT DATE: 20220127
